FAERS Safety Report 5635466-2 (Version None)
Quarter: 2008Q1

REPORT INFORMATION
  Report Type: 
  Country: None (occurrence: None)
  Receive Date: 20080222
  Receipt Date: 20080211
  Transmission Date: 20080703
  Serious: Yes (Hospitalization, Other)
  Sender: FDA-Public Use
  Company Number: US-PFIZER INC-2008014080

PATIENT
  Sex: Female

DRUGS (7)
  1. LYRICA [Suspect]
     Indication: SPINAL CORD INJURY
  2. GABAPENTIN [Suspect]
  3. TRAZODONE HCL [Suspect]
     Indication: SLEEP DISORDER
  4. LEVOTHYROXINE SODIUM [Concomitant]
  5. METOPROLOL TARTRATE [Concomitant]
  6. ZOLOFT [Concomitant]
  7. FOSAMAX [Concomitant]

REACTIONS (12)
  - ANEURYSM [None]
  - ARRHYTHMIA [None]
  - DEHYDRATION [None]
  - DEPRESSION [None]
  - DRUG DOSE OMISSION [None]
  - GAIT DISTURBANCE [None]
  - HEART RATE DECREASED [None]
  - HYPERHIDROSIS [None]
  - LABILE BLOOD PRESSURE [None]
  - MUSCLE TWITCHING [None]
  - SUICIDAL IDEATION [None]
  - WITHDRAWAL SYNDROME [None]
